FAERS Safety Report 15171436 (Version 1)
Quarter: 2018Q3

REPORT INFORMATION
  Report Type: Spontaneous
  Country: US (occurrence: US)
  Receive Date: 20180720
  Receipt Date: 20180720
  Transmission Date: 20181010
  Serious: Yes (Hospitalization)
  Sender: FDA-Public Use
  Company Number: US-MYLANLABS-2018M1053535

PATIENT
  Age: 52 Year
  Sex: Female

DRUGS (3)
  1. DOXORUBICIN [Suspect]
     Active Substance: DOXORUBICIN
     Indication: BREAST CANCER
     Dosage: APPROXIMATELY 0.05 G/M2 PER CYCLE FOR SIX CYCLES
     Route: 065
  2. CYCLOPHOSPHAMIDE. [Suspect]
     Active Substance: CYCLOPHOSPHAMIDE
     Indication: BREAST CANCER
     Dosage: SIX CYCLES
     Route: 065
  3. FLUOROURACIL. [Suspect]
     Active Substance: FLUOROURACIL
     Indication: BREAST CANCER
     Dosage: SIX CYCLES
     Route: 065

REACTIONS (13)
  - Pulmonary infarction [Unknown]
  - Tricuspid valve incompetence [Unknown]
  - Ascites [Unknown]
  - Left ventricular dysfunction [Unknown]
  - Ventricular tachycardia [Unknown]
  - Pleural effusion [Recovered/Resolved]
  - Cardiac ventricular thrombosis [Recovered/Resolved]
  - Myocardial ischaemia [Unknown]
  - Pulmonary embolism [Unknown]
  - Deep vein thrombosis [Unknown]
  - Cardiomyopathy [Recovering/Resolving]
  - Mitral valve incompetence [Unknown]
  - Pulmonary hypertension [Unknown]
